FAERS Safety Report 25673665 (Version 1)
Quarter: 2025Q3

REPORT INFORMATION
  Report Type: Spontaneous
  Country: US (occurrence: US)
  Receive Date: 20250813
  Receipt Date: 20250813
  Transmission Date: 20251020
  Serious: No
  Sender: BIOGEN
  Company Number: US-BIOGEN-2023BI01239642

PATIENT
  Age: 28 Year
  Sex: Female

DRUGS (4)
  1. AVONEX [Suspect]
     Active Substance: INTERFERON BETA-1A
     Indication: Multiple sclerosis
     Dosage: 1/4 DOSE 7.5 MCG IM ONE WEEK
     Route: 050
     Dates: start: 20231117, end: 20231117
  2. AVONEX [Suspect]
     Active Substance: INTERFERON BETA-1A
     Dosage: 1/2 DOSE 15 MCG IM ON WEEK 2
     Route: 050
     Dates: start: 20231124, end: 20231124
  3. AVONEX [Suspect]
     Active Substance: INTERFERON BETA-1A
     Dosage: 3/4 DOSE 22.5 MCG IM WEEK 3
     Route: 050
     Dates: start: 20231201, end: 20231201
  4. AVONEX [Suspect]
     Active Substance: INTERFERON BETA-1A
     Dosage: FULL DOSE 30 MCG IM ON WEEK 4 AND EVERY WEEK THEREAFTER
     Route: 050
     Dates: start: 20231208, end: 202408

REACTIONS (6)
  - Rubber sensitivity [Recovered/Resolved]
  - Pain [Recovered/Resolved]
  - Migraine [Recovered/Resolved]
  - Influenza like illness [Recovered/Resolved]
  - Urticaria [Recovered/Resolved]
  - Nausea [Recovered/Resolved]

NARRATIVE: CASE EVENT DATE: 20231117
